FAERS Safety Report 8238784-7 (Version None)
Quarter: 2012Q1

REPORT INFORMATION
  Report Type: 
  Country: None (occurrence: None)
  Receive Date: 20120327
  Receipt Date: 20120319
  Transmission Date: 20120608
  Serious: Yes (Other)
  Sender: FDA-Public Use
  Company Number: US-ELI_LILLY_AND_COMPANY-US201006001266

PATIENT
  Sex: Female
  Weight: 64.86 kg

DRUGS (7)
  1. VERAPAMIL [Concomitant]
     Indication: HYPOTENSION
     Dosage: UNK
  2. FORTEO [Suspect]
     Dosage: 20 UG, DAILY (1/D)
  3. FORTEO [Suspect]
     Dosage: 20 UG, DAILY (1/D)
  4. SPIRIVA [Concomitant]
  5. FORTEO [Suspect]
     Dosage: 20 UG, DAILY (1/D)
  6. FORTEO [Suspect]
     Indication: OSTEOPOROSIS
     Dosage: 20 UG, DAILY (1/D)
  7. FORTEO [Suspect]
     Dosage: 20 UG, DAILY (1/D)

REACTIONS (10)
  - EXTRASYSTOLES [None]
  - BONE PAIN [None]
  - HEART RATE IRREGULAR [None]
  - DIZZINESS [None]
  - INJECTION SITE ERYTHEMA [None]
  - BLOOD PRESSURE DECREASED [None]
  - HYPOTENSION [None]
  - HYPERTENSION [None]
  - ARTHRALGIA [None]
  - NAUSEA [None]
